FAERS Safety Report 5255305-1 (Version None)
Quarter: 2007Q1

REPORT INFORMATION
  Report Type: 
  Country: None (occurrence: None)
  Receive Date: 20070305
  Receipt Date: 20070222
  Transmission Date: 20070707
  Serious: Yes (Congenital Anomaly)
  Sender: FDA-Public Use
  Company Number: JP-GLAXOSMITHKLINE-B0375762A

PATIENT
  Sex: Female

DRUGS (7)
  1. EPIVIR [Suspect]
     Indication: HIV INFECTION
     Dosage: 150MG TWICE PER DAY
     Dates: start: 20040213
  2. RETROVIR [Suspect]
     Indication: HIV INFECTION
     Dosage: 400MG PER DAY
     Dates: start: 20040213
  3. VIRACEPT [Suspect]
     Indication: HIV INFECTION
     Dosage: 2500MG PER DAY
     Dates: start: 20040213
  4. RETROVIR [Suspect]
     Dosage: .46ML FOUR TIMES PER DAY
     Route: 048
     Dates: start: 20040622, end: 20040803
  5. LOPEMIN [Concomitant]
     Dosage: 1MG PER DAY
     Dates: start: 20040304, end: 20050130
  6. FERRUM [Concomitant]
  7. UTEMERIN [Concomitant]
     Dates: start: 20040523, end: 20040621

REACTIONS (4)
  - ANAEMIA [None]
  - CLEFT LIP AND PALATE [None]
  - DRUG EXPOSURE DURING PREGNANCY [None]
  - DRUG EXPOSURE VIA BREAST MILK [None]
